FAERS Safety Report 13439517 (Version 1)
Quarter: 2017Q2

REPORT INFORMATION
  Report Type: Spontaneous
  Country: US (occurrence: US)
  Receive Date: 20170413
  Receipt Date: 20170413
  Transmission Date: 20170830
  Serious: Yes (Hospitalization)
  Sender: FDA-Public Use
  Company Number: US-SA-2017SA063748

PATIENT
  Age: 26 Year
  Sex: Male

DRUGS (2)
  1. RASBURICASE [Suspect]
     Active Substance: RASBURICASE
     Indication: TUMOUR LYSIS SYNDROME
     Route: 065
  2. MESNEX [Concomitant]
     Active Substance: MESNA

REACTIONS (16)
  - Haemolysis [Recovering/Resolving]
  - Haemoglobin decreased [Recovering/Resolving]
  - Glomerulonephritis [Recovering/Resolving]
  - Fatigue [Recovering/Resolving]
  - Oxygen saturation decreased [Recovering/Resolving]
  - Respiratory rate increased [Recovering/Resolving]
  - Haemoglobinuria [Recovering/Resolving]
  - Tachycardia [Recovering/Resolving]
  - Body temperature increased [Recovering/Resolving]
  - Asthenia [Recovering/Resolving]
  - Syncope [Recovering/Resolving]
  - Blood creatinine increased [Recovering/Resolving]
  - Methaemoglobinaemia [Recovering/Resolving]
  - Dyspnoea [Recovering/Resolving]
  - Renal tubular necrosis [Recovering/Resolving]
  - Blood urea increased [Recovering/Resolving]
